FAERS Safety Report 25823653 (Version 2)
Quarter: 2025Q4

REPORT INFORMATION
  Report Type: Spontaneous
  Country: JP (occurrence: JP)
  Receive Date: 20250919
  Receipt Date: 20251017
  Transmission Date: 20260117
  Serious: Yes (Hospitalization)
  Sender: BOEHRINGER INGELHEIM
  Company Number: JP-NBI-2025-BI-084302

PATIENT
  Age: 74 Year
  Sex: Female

DRUGS (4)
  1. OFEV [Suspect]
     Active Substance: NINTEDANIB
     Indication: Interstitial lung disease
     Dates: start: 20250501, end: 20250910
  2. OFEV [Suspect]
     Active Substance: NINTEDANIB
     Dosage: IN THE MORNING AND EVENING
     Dates: start: 20250911
  3. OFEV [Suspect]
     Active Substance: NINTEDANIB
  4. ENSURE [Concomitant]
     Active Substance: AMINO ACIDS\DEXTROSE\ELECTROLYTES NOS\SOYBEAN OIL\VITAMINS
     Indication: Product used for unknown indication

REACTIONS (12)
  - Cough [Unknown]
  - Diarrhoea [Recovered/Resolved]
  - Feeding disorder [Recovering/Resolving]
  - Decreased appetite [Not Recovered/Not Resolved]
  - Diarrhoea [Recovered/Resolved]
  - Weight gain poor [Not Recovered/Not Resolved]
  - Weight decreased [Not Recovered/Not Resolved]
  - Autophony [Not Recovered/Not Resolved]
  - Oropharyngeal pain [Recovered/Resolved]
  - Diarrhoea [Recovered/Resolved]
  - Diarrhoea [Recovered/Resolved]
  - Eustachian tube patulous [Not Recovered/Not Resolved]

NARRATIVE: CASE EVENT DATE: 20250801
